FAERS Safety Report 10100395 (Version 1)
Quarter: 2014Q2

REPORT INFORMATION
  Report Type: Spontaneous
  Country: US (occurrence: US)
  Receive Date: 20140423
  Receipt Date: 20140423
  Transmission Date: 20141212
  Serious: No
  Sender: FDA-Public Use
  Company Number: US-PFIZER INC-2014109794

PATIENT
  Age: 69 Year
  Sex: Male
  Weight: 108.8 kg

DRUGS (8)
  1. EFFEXOR XR [Suspect]
     Indication: BIPOLAR I DISORDER
     Dosage: 150 MG, 2X/DAY
     Route: 048
     Dates: end: 20140301
  2. WELLBUTRIN [Concomitant]
     Dosage: UNK
     Dates: end: 2014
  3. LAMICTAL [Concomitant]
     Dosage: UNK
     Dates: end: 2014
  4. NEURONTIN [Concomitant]
     Dosage: UNK
     Dates: end: 2014
  5. GEODON [Concomitant]
     Dosage: UNK
  6. DEPAKOTE [Concomitant]
     Dosage: UNK
  7. SEROQUEL [Concomitant]
     Dosage: UNK
  8. TRAZODONE [Concomitant]
     Dosage: UNK
     Dates: end: 2014

REACTIONS (9)
  - Withdrawal syndrome [Not Recovered/Not Resolved]
  - Diarrhoea [Not Recovered/Not Resolved]
  - Abdominal discomfort [Not Recovered/Not Resolved]
  - Cardiac disorder [Not Recovered/Not Resolved]
  - Extrasystoles [Not Recovered/Not Resolved]
  - Nausea [Not Recovered/Not Resolved]
  - Malaise [Not Recovered/Not Resolved]
  - Anxiety [Not Recovered/Not Resolved]
  - Vitamin B12 decreased [Unknown]
